FAERS Safety Report 25644667 (Version 4)
Quarter: 2025Q3

REPORT INFORMATION
  Report Type: Spontaneous
  Country: US (occurrence: US)
  Receive Date: 20250805
  Receipt Date: 20250918
  Transmission Date: 20251020
  Serious: No
  Sender: PFIZER
  Company Number: US-PFIZER INC-202500154103

PATIENT
  Age: 10 Year
  Sex: Female

DRUGS (1)
  1. GENOTROPIN [Suspect]
     Active Substance: SOMATROPIN
     Dosage: 1.8 MG, DAILY SQ
     Route: 058
     Dates: start: 20250727

REACTIONS (4)
  - Injection site pain [Unknown]
  - Device use issue [Unknown]
  - Device breakage [Unknown]
  - Device mechanical issue [Unknown]
